FAERS Safety Report 10432306 (Version 2)
Quarter: 2015Q1

REPORT INFORMATION
  Report Type: Spontaneous
  Country: US (occurrence: None)
  Receive Date: 20140815
  Receipt Date: 20150129
  Transmission Date: 20150720
  Serious: Yes (Other)
  Sender: FDA-Public Use
  Company Number: A-NJ2014-98417

PATIENT
  Age: 73 Year
  Sex: Female

DRUGS (4)
  1. WARFARIN [Concomitant]
     Active Substance: WARFARIN
  2. TYVASO [Suspect]
     Active Substance: TREPROSTINIL
     Indication: PULMONARY HYPERTENSION
     Dosage: 54 MCG,QID, RESPIRATORY
     Dates: start: 20120917
  3. REVATIO (SILDENAFIL CITRATE) [Concomitant]
  4. OPSUMIT [Suspect]
     Active Substance: MACITENTAN
     Indication: PULMONARY ARTERIAL HYPERTENSION
     Route: 048
     Dates: start: 20140305

REACTIONS (4)
  - Dyspnoea [None]
  - Fatigue [None]
  - Feeling abnormal [None]
  - Anaemia [None]

NARRATIVE: CASE EVENT DATE: 2014
